FAERS Safety Report 6591527-5 (Version None)
Quarter: 2010Q1

REPORT INFORMATION
  Report Type: 
  Country: None (occurrence: None)
  Receive Date: 20100220
  Receipt Date: 20100208
  Transmission Date: 20100710
  Serious: Yes (Hospitalization)
  Sender: FDA-Public Use
  Company Number: US-ELI_LILLY_AND_COMPANY-US201002002043

PATIENT
  Sex: Female

DRUGS (21)
  1. BYETTA [Suspect]
     Indication: TYPE 2 DIABETES MELLITUS
     Dosage: 5 UG, 2/D
     Route: 058
     Dates: start: 20090101, end: 20090101
  2. BYETTA [Suspect]
     Dosage: 10 UG, 2/D
     Route: 058
     Dates: start: 20090101
  3. METFORMIN [Concomitant]
     Indication: TYPE 2 DIABETES MELLITUS
     Dosage: 500 MG, 2/D
     Route: 048
  4. ATENOLOL [Concomitant]
     Indication: HYPERTENSION
     Dosage: 50 MG, DAILY (1/D)
     Route: 048
  5. PLAVIX [Concomitant]
     Indication: CORONARY ARTERY BYPASS
     Dosage: 75 MG, DAILY (1/D)
     Route: 048
     Dates: start: 19950101
  6. XYZAL [Concomitant]
     Indication: SEASONAL ALLERGY
     Dosage: 5 MG, DAILY (1/D)
     Route: 048
  7. LEXAPRO [Concomitant]
     Indication: DEPRESSION
     Dosage: 10 MG, DAILY (1/D)
     Route: 048
  8. FOLIC ACID [Concomitant]
     Dosage: 1 MG, DAILY (1/D)
     Route: 048
  9. LASIX [Concomitant]
     Indication: POLYURIA
     Dosage: 40 MG, EACH MORNING
     Route: 048
  10. LASIX [Concomitant]
     Dosage: 20 MG, EACH EVENING
     Route: 048
  11. DIAZEPAM [Concomitant]
     Indication: MENIERE'S DISEASE
     Dosage: 2.5 MG, EACH MORNING
     Route: 048
  12. DIAZEPAM [Concomitant]
     Dosage: 5 MG, EACH EVENING
     Route: 048
  13. ASPIRIN [Concomitant]
     Dosage: 81 MG, DAILY (1/D)
     Route: 048
  14. NEXIUM [Concomitant]
     Indication: GASTROOESOPHAGEAL REFLUX DISEASE
     Dosage: 40 MG, DAILY (1/D)
     Route: 048
  15. DIOVAN [Concomitant]
     Indication: HYPERTENSION
     Dosage: 80 MG, DAILY (1/D)
     Route: 048
  16. LIPITOR [Concomitant]
     Indication: BLOOD CHOLESTEROL
     Dosage: 20 MG, DAILY (1/D)
     Route: 048
  17. SINGULAIR [Concomitant]
     Indication: SEASONAL ALLERGY
     Dosage: 10 MG, DAILY (1/D)
     Route: 048
  18. ADVAIR DISKUS 100/50 [Concomitant]
     Indication: ASTHMA
     Dosage: UNK, 2/D
  19. PROVENTIL /00139501/ [Concomitant]
     Indication: ASTHMA
     Dosage: UNK, AS NEEDED
  20. VERAMYST [Concomitant]
     Indication: NASAL CONGESTION
     Dosage: UNK, AS NEEDED
     Route: 045
  21. ANTIOXIDANT                        /02147801/ [Concomitant]
     Dosage: UNK, DAILY (1/D)
     Route: 048
     Dates: end: 20100101

REACTIONS (12)
  - ASTHMA [None]
  - BACK PAIN [None]
  - DEHYDRATION [None]
  - DYSPHONIA [None]
  - DYSPNOEA [None]
  - EAR INFECTION [None]
  - EAR PAIN [None]
  - MALAISE [None]
  - NON-CARDIAC CHEST PAIN [None]
  - PNEUMONIA [None]
  - UPPER RESPIRATORY TRACT CONGESTION [None]
  - VERTIGO [None]
